FAERS Safety Report 6066902-8 (Version None)
Quarter: 2009Q1

REPORT INFORMATION
  Report Type: 
  Country: None (occurrence: None)
  Receive Date: 20090203
  Receipt Date: 20090121
  Transmission Date: 20090719
  Serious: Yes (Other)
  Sender: FDA-Public Use
  Company Number: 230284K09USA

PATIENT
  Age: 59 Year
  Sex: Female
  Weight: 117 kg

DRUGS (20)
  1. REBIF [Suspect]
     Indication: MULTIPLE SCLEROSIS
     Dosage: 44 MCG, 3 IN 1 WEEKS, SUBCUTANEOUS, 22 MCG, 3 IN 1 WEEKS, SUBCUTANEOUS
     Route: 058
     Dates: start: 20041201, end: 20081101
  2. REBIF [Suspect]
     Indication: MULTIPLE SCLEROSIS
     Dosage: 44 MCG, 3 IN 1 WEEKS, SUBCUTANEOUS, 22 MCG, 3 IN 1 WEEKS, SUBCUTANEOUS
     Route: 058
     Dates: start: 20081101
  3. HYDROCHLOROTHIAZIDE [Suspect]
  4. ADVAIR HFA [Suspect]
  5. NEURONTIN [Suspect]
  6. TIZANIDINE HCL [Concomitant]
  7. LIPITOR [Concomitant]
  8. BACLOFEN [Concomitant]
  9. LEXAPRO [Concomitant]
  10. CLONIDINE [Concomitant]
  11. OXYBUTYNIN CHLORIDE [Concomitant]
  12. CALCIUM (CALCIUM-SANDOZ) [Concomitant]
  13. MULTI-VITAMINS [Concomitant]
  14. ASPIRIN [Concomitant]
  15. NASONEX [Concomitant]
  16. ALBUTEROL [Concomitant]
  17. SINGULAIR [Concomitant]
  18. PRIMIDONE [Concomitant]
  19. RANITIDINE [Concomitant]
  20. MEGA OMEGA 3 (FISH OIL) [Concomitant]

REACTIONS (3)
  - ANKLE FRACTURE [None]
  - DIABETES MELLITUS [None]
  - STRESS FRACTURE [None]
